FAERS Safety Report 7738543-5 (Version None)
Quarter: 2011Q3

REPORT INFORMATION
  Report Type: 
  Country: None (occurrence: None)
  Receive Date: 20110906
  Receipt Date: 20110817
  Transmission Date: 20111222
  Serious: Yes (Death, Other)
  Sender: FDA-Public Use
  Company Number: FK201101760

PATIENT
  Age: 7 Month

DRUGS (6)
  1. CYTARABINE [Suspect]
     Indication: ACUTE MYELOID LEUKAEMIA
     Dosage: 2000MG /M2 , FOR 7 DAYS
  2. HYDROCORTISONE [Suspect]
     Indication: ACUTE MYELOID LEUKAEMIA
     Dosage: 3 MG, INTRATHECAL
     Route: 037
  3. ETOPOSIDE [Suspect]
     Indication: ACUTE MYELOID LEUKAEMIA
     Dosage: 150 MG/M2, FOR  5 DAYS
  4. METHOTREXATE [Suspect]
     Indication: ACUTE MYELOID LEUKAEMIA
     Dosage: 3 MG , INTRATHECAL
     Route: 037
  5. MITOXANTRONE [Suspect]
     Indication: ACUTE MYELOID LEUKAEMIA
     Dosage: 5 MG/M2, FOR 5 DAYS
  6. C-CSF (GRANULOCYTE COLONY STIMULATING FACTOR) (GRANULOCYTE COLONY STIM [Suspect]
     Indication: NEUTROPENIA

REACTIONS (7)
  - PYREXIA [None]
  - NEUTROPENIA [None]
  - RESPIRATORY FAILURE [None]
  - ACUTE RESPIRATORY DISTRESS SYNDROME [None]
  - HISTIOCYTOSIS [None]
  - CONTINUOUS HAEMODIAFILTRATION [None]
  - BLOOD LACTATE DEHYDROGENASE INCREASED [None]
